FAERS Safety Report 7575620-6 (Version None)
Quarter: 2011Q2

REPORT INFORMATION
  Report Type: 
  Country: None (occurrence: None)
  Receive Date: 20110628
  Receipt Date: 20110614
  Transmission Date: 20111010
  Serious: Yes (Hospitalization)
  Sender: FDA-Public Use
  Company Number: IN-MYLANLABS-2011S1012558

PATIENT
  Age: 25 Year
  Sex: Female

DRUGS (6)
  1. METOPROLOL TARTRATE [Suspect]
     Indication: INTENTIONAL OVERDOSE
     Dosage: 20 X 50MG TABLETS
     Route: 048
  2. VERPAMIL HCL [Suspect]
     Indication: SUICIDE ATTEMPT
     Dosage: 25 X 40MG TABLETS
     Route: 048
  3. SERTRALINE HYDROCHLORIDE [Concomitant]
     Indication: DEPRESSION
     Dosage: 50MG
     Route: 065
  4. CLONAZEPAM [Concomitant]
     Indication: DEPRESSION
     Dosage: 1MG
     Route: 065
  5. METOPROLOL TARTRATE [Suspect]
     Indication: SUICIDE ATTEMPT
     Dosage: 20 X 50MG TABLETS
     Route: 048
  6. VERPAMIL HCL [Suspect]
     Indication: INTENTIONAL OVERDOSE
     Dosage: 25 X 40MG TABLETS
     Route: 048

REACTIONS (5)
  - INTENTIONAL OVERDOSE [None]
  - SUICIDE ATTEMPT [None]
  - HYPOTENSION [None]
  - ATRIOVENTRICULAR BLOCK FIRST DEGREE [None]
  - OPTIC ISCHAEMIC NEUROPATHY [None]
